FAERS Safety Report 4466283-7 (Version None)
Quarter: 2004Q3

REPORT INFORMATION
  Report Type: 
  Country: None (occurrence: None)
  Receive Date: 20040930
  Receipt Date: 20040922
  Transmission Date: 20050211
  Serious: Yes (Hospitalization, Other)
  Sender: FDA-Public Use
  Company Number: IL-JNJFOC-20040908190

PATIENT
  Age: 18 Year
  Sex: Female
  Weight: 45 kg

DRUGS (1)
  1. ACETAMINOPHEN [Suspect]

REACTIONS (8)
  - BLOOD BILIRUBIN INCREASED [None]
  - COAGULOPATHY [None]
  - COMA [None]
  - DIALYSIS [None]
  - ENCEPHALOPATHY [None]
  - HEPATIC FAILURE [None]
  - INTRACRANIAL PRESSURE INCREASED [None]
  - LIVER TRANSPLANT [None]
